FAERS Safety Report 6019658-9 (Version None)
Quarter: 2008Q4

REPORT INFORMATION
  Report Type: 
  Country: None (occurrence: None)
  Receive Date: 20081224
  Receipt Date: 20081217
  Transmission Date: 20090506
  Serious: Yes (Hospitalization)
  Sender: FDA-Public Use
  Company Number: US-ALLERGAN-0814326US

PATIENT
  Sex: Female

DRUGS (5)
  1. BOTOX [Suspect]
     Indication: DYSKINESIA
     Dosage: 50 UNITS, SINGLE
     Route: 030
     Dates: start: 20081104, end: 20081104
  2. BOTOX [Suspect]
  3. CLONAZEPAM [Concomitant]
     Indication: MEIGE'S SYNDROME
     Dosage: 0.5 MG-1.0 MG
     Route: 048
     Dates: start: 20080901, end: 20081107
  4. DIAZEPAM [Concomitant]
     Indication: MEIGE'S SYNDROME
     Dosage: 2 MG, Q6HR
     Route: 042
     Dates: start: 20081107, end: 20081201
  5. DIAZEPAM [Concomitant]
     Dosage: 1 MG, BID TO TID
     Dates: start: 20081202

REACTIONS (2)
  - DYSPHAGIA [None]
  - SALIVA ALTERED [None]
